FAERS Safety Report 8584714-8 (Version None)
Quarter: 2012Q3

REPORT INFORMATION
  Report Type: 
  Country: None (occurrence: None)
  Receive Date: 20120810
  Receipt Date: 20120801
  Transmission Date: 20120928
  Serious: Yes (Other)
  Sender: FDA-Public Use
  Company Number: JP-SANOFI-AVENTIS-2012SA049833

PATIENT
  Age: 63 Year
  Sex: Female
  Weight: 53 kg

DRUGS (25)
  1. INSULIN GLULISINE [Suspect]
     Dosage: 6 UNITS IN MORNING, 8 UNITS IN NOON AND 6 UNITS IN THE EVENING
     Route: 058
     Dates: start: 20100930, end: 20110329
  2. SOLOSTAR [Suspect]
     Dates: start: 20100809, end: 20100824
  3. INSULIN GLULISINE [Suspect]
     Indication: DIABETES MELLITUS
     Dosage: DOSE:4 UNIT(S)
     Route: 058
     Dates: start: 20100518, end: 20100519
  4. SOLOSTAR [Suspect]
     Dates: start: 20100520, end: 20100523
  5. SODIUM POLYSTYRENE SULFONATE [Concomitant]
     Route: 048
     Dates: start: 20100527, end: 20100621
  6. INSULIN GLULISINE [Suspect]
     Dosage: 6 UNITS IN MORNING, 6 UNITS IN NOON AND 4 UNITS IN THE EVENING
     Route: 058
     Dates: start: 20100524, end: 20100622
  7. SOLOSTAR [Suspect]
     Dates: start: 20100524, end: 20100622
  8. SOLOSTAR [Suspect]
     Dates: start: 20100825, end: 20100929
  9. INSULIN GLULISINE [Suspect]
     Dosage: 6 UNITS IN MORNING, 8 UNITS IN NOON AND 6 UNITS IN THE EVENING
     Route: 058
     Dates: start: 20100809, end: 20100824
  10. SOLOSTAR [Suspect]
     Dates: start: 20100623, end: 20100808
  11. LANTUS SOLOSTAR [Concomitant]
     Dosage: DOSE:4 UNIT(S)
     Route: 058
     Dates: start: 20110406
  12. IMIDAPRIL HYDROCHLORIDE [Concomitant]
     Route: 048
     Dates: end: 20110329
  13. INSULIN GLULISINE [Suspect]
     Dosage: 4 UNITS IN MORNING, 10 UNITS IN NOON AND 6 UNITS IN THE EVENING
     Route: 058
     Dates: start: 20100825, end: 20100929
  14. GLUCOBAY [Concomitant]
     Indication: DIABETES MELLITUS
     Route: 048
     Dates: end: 20100517
  15. MICARDIS [Concomitant]
     Route: 048
     Dates: start: 20100518, end: 20110329
  16. LASIX [Concomitant]
     Route: 048
     Dates: start: 20101022, end: 20110329
  17. INSULIN GLULISINE [Suspect]
     Dosage: 6 UNITS IN MORNING, 8 UNITS IN NOON AND 4 UNITS IN THE EVENING
     Route: 058
     Dates: start: 20100623, end: 20100808
  18. SOLOSTAR [Suspect]
     Dates: start: 20100930, end: 20110329
  19. INSULIN GLULISINE [Suspect]
     Dosage: 4 UNITS IN MORNING, 6 UNITS IN NOON AND 4 UNITS IN THE EVENING
     Route: 058
     Dates: start: 20100520, end: 20100523
  20. GLIMICRON [Concomitant]
     Indication: DIABETES MELLITUS
     Dosage: STRENGTH: 40MG
     Route: 048
     Dates: end: 20100517
  21. DOXAZOSIN MESYLATE [Concomitant]
     Route: 048
     Dates: start: 20100808, end: 20110329
  22. SOLOSTAR [Suspect]
     Indication: DEVICE THERAPY
     Dates: start: 20100518, end: 20100519
  23. LANTUS SOLOSTAR [Concomitant]
     Indication: DIABETES MELLITUS
     Dosage: IN THE MORNING DOSE:6 UNIT(S)
     Route: 058
     Dates: end: 20110405
  24. CALBLOCK [Concomitant]
     Route: 048
     Dates: start: 20100709, end: 20110329
  25. ROCEPHIN [Concomitant]
     Route: 041
     Dates: start: 20100513, end: 20100520

REACTIONS (1)
  - RENAL FAILURE CHRONIC [None]
